FAERS Safety Report 19584673 (Version 2)
Quarter: 2023Q2

REPORT INFORMATION
  Report Type: Spontaneous
  Country: US (occurrence: US)
  Receive Date: 20210720
  Receipt Date: 20230607
  Transmission Date: 20230721
  Serious: Yes (Other)
  Sender: FDA-Public Use
  Company Number: US-PFIZER INC-2021858587

PATIENT
  Age: 79 Year
  Sex: Female

DRUGS (5)
  1. IBRANCE [Suspect]
     Active Substance: PALBOCICLIB
     Indication: Breast cancer female
     Dosage: 125 MG (ONCE A DAY FOR 3 WEEKS DAYS 1 TO 21 AND THEN 7 DAYS OFF)
     Route: 048
     Dates: start: 20210315
  2. BISOPROLOL [Concomitant]
     Active Substance: BISOPROLOL
     Dosage: 10 MG, 1X/DAY
  3. LOSARTAN [Concomitant]
     Active Substance: LOSARTAN
     Indication: Hypertension
     Dosage: 100 MG, 1X/DAY
  4. SYNTHROID [Concomitant]
     Active Substance: LEVOTHYROXINE SODIUM
     Dosage: 100 MG, 1X/DAY
  5. FEMARA [Concomitant]
     Active Substance: LETROZOLE
     Indication: Hypertension
     Dosage: UNK

REACTIONS (2)
  - Pruritus genital [Unknown]
  - Cystitis [Unknown]

NARRATIVE: CASE EVENT DATE: 20210401
